FAERS Safety Report 8985552 (Version 1)
Quarter: 2012Q4

REPORT INFORMATION
  Report Type: 
  Country: GB (occurrence: GB)
  Receive Date: 20121226
  Receipt Date: 20121226
  Transmission Date: 20130627
  Serious: Yes (Other)
  Sender: FDA-Public Use
  Company Number: GB-PFIZER INC-2012322830

PATIENT
  Age: 61 Year

DRUGS (17)
  1. IBUPROFEN [Suspect]
     Indication: PAIN
     Dosage: 400 mg, 3x/day
     Route: 048
     Dates: start: 20121120
  2. IBUPROFEN [Suspect]
     Indication: PAIN
     Dosage: 400 mg, UNK
     Dates: start: 20121126, end: 20121127
  3. LORAZEPAM [Concomitant]
     Dosage: For review on discharge.
     Route: 048
     Dates: start: 20121105
  4. MORPHINE SULFATE [Concomitant]
     Dosage: 30 mg twice daily
     Route: 048
  5. COLCHICINE [Concomitant]
     Dosage: 500 ug, twice daily
     Route: 048
  6. CARBOCISTEINE [Concomitant]
     Dosage: 750 mg, 3 times daily
     Route: 048
  7. OMEPRAZOLE [Concomitant]
     Dosage: 20 mg, 2x/day
     Route: 048
  8. RAMIPRIL [Concomitant]
     Dosage: 5 mg, 1x/day
     Route: 048
  9. FEXOFENADINE [Concomitant]
     Dosage: 180 mg, 1x/day
     Route: 048
  10. SERETIDE [Concomitant]
     Dosage: 2 puffs twice daily
     Route: 055
  11. BISOPROLOL [Concomitant]
     Dosage: 2.5 mg, 2x/day
     Route: 048
  12. DOXYCYCLINE [Concomitant]
     Dosage: 100 mg, 1x/day
     Route: 048
  13. CLEXANE [Concomitant]
     Dosage: 40mg/0.4ml daily
     Route: 058
     Dates: start: 20121021
  14. TRAMADOL [Concomitant]
     Dosage: 110mg 4x/day, As needed.
     Route: 048
  15. PARACETAMOL [Concomitant]
     Dosage: 1 g, 4x/day
     Route: 048
  16. CO-CODAMOL [Concomitant]
     Dosage: UNK
     Route: 048
  17. MORPHINE HYDROCHLORIDE [Concomitant]
     Dosage: 10mg/5ml. Actually don^t know when the drug was started except that it was prior to admission.
     Route: 048

REACTIONS (3)
  - Skin exfoliation [Recovering/Resolving]
  - Erythema [Recovering/Resolving]
  - Dermatitis [Recovering/Resolving]
